FAERS Safety Report 23455770 (Version 1)
Quarter: 2024Q1

REPORT INFORMATION
  Report Type: Spontaneous
  Country: US (occurrence: None)
  Receive Date: 20240129
  Receipt Date: 20240129
  Transmission Date: 20240409
  Serious: Yes (Other)
  Sender: FDA-Public Use
  Company Number: None

PATIENT
  Age: 49 Year
  Sex: Female
  Weight: 61.2 kg

DRUGS (17)
  1. PAXLOVID [Suspect]
     Active Substance: NIRMATRELVIR\RITONAVIR
     Indication: SARS-CoV-2 test positive
     Dosage: OTHER QUANTITY : 30 TABLET(S);?FREQUENCY : TWICE A DAY;?
     Route: 048
     Dates: start: 20240125, end: 20240128
  2. CREON [Concomitant]
     Active Substance: PANCRELIPASE AMYLASE\PANCRELIPASE LIPASE\PANCRELIPASE PROTEASE
  3. Amlodepene [Concomitant]
  4. Atenonol [Concomitant]
  5. Quilipta [Concomitant]
  6. MEMANTINE [Concomitant]
     Active Substance: MEMANTINE
  7. maxalt MLT as needed [Concomitant]
  8. Zyrtec as needed [Concomitant]
  9. ONDANSETRON [Concomitant]
  10. FISH OIL [Concomitant]
     Active Substance: FISH OIL
  11. VITAMINS [Concomitant]
     Active Substance: VITAMINS
  12. MAGNESIUM [Concomitant]
     Active Substance: MAGNESIUM
  13. PROBIOTICS NOS [Concomitant]
     Active Substance: PROBIOTICS NOS
  14. VITAMIN B12 [Concomitant]
     Active Substance: CYANOCOBALAMIN
  15. BIOTIN [Concomitant]
     Active Substance: BIOTIN
  16. COLLAGEN [Concomitant]
     Active Substance: COLLAGEN
  17. VITAMIN D [Concomitant]
     Active Substance: VITAMIN D NOS

REACTIONS (5)
  - Decreased appetite [None]
  - Diarrhoea [None]
  - Vomiting [None]
  - Pancreatitis [None]
  - Weight decreased [None]

NARRATIVE: CASE EVENT DATE: 20240128
